FAERS Safety Report 9137689 (Version 2)
Quarter: 2013Q3

REPORT INFORMATION
  Report Type: Report from Study
  Country: US (occurrence: US)
  Receive Date: 20130304
  Receipt Date: 20130722
  Transmission Date: 20140515
  Serious: Yes (Hospitalization, Other)
  Sender: FDA-Public Use
  Company Number: US-BRISTOL-MYERS SQUIBB COMPANY-17408402

PATIENT
  Age: 41 Year
  Sex: Male
  Weight: 101.32 kg

DRUGS (12)
  1. ATAZANAVIR [Suspect]
     Indication: HIV INFECTION
     Route: 048
     Dates: start: 20101103, end: 20130602
  2. TRUVADA [Suspect]
     Indication: HIV INFECTION
     Route: 048
     Dates: start: 20101103, end: 20130602
  3. COBICISTAT [Suspect]
     Indication: HIV INFECTION
     Route: 048
     Dates: start: 20101103, end: 20130602
  4. PLACEBO [Suspect]
     Indication: HIV INFECTION
     Dosage: TAB?INTR: 30DEC12
     Route: 048
     Dates: start: 20101103, end: 20130602
  5. ENTOCORT [Concomitant]
  6. ASACOL [Concomitant]
  7. CIPRO [Concomitant]
  8. NORCO [Concomitant]
  9. FLAGYL [Concomitant]
  10. DELTASONE [Concomitant]
  11. SENOKOT-S [Concomitant]
  12. AMBIEN [Concomitant]

REACTIONS (7)
  - Diabetes mellitus [Recovered/Resolved]
  - Dehydration [Recovered/Resolved]
  - Renal failure acute [Recovered/Resolved]
  - Chest pain [Recovered/Resolved]
  - Hyperglycaemia [Recovered/Resolved]
  - Hypertriglyceridaemia [Recovered/Resolved]
  - Oesophageal candidiasis [Recovered/Resolved]
